FAERS Safety Report 14604187 (Version 1)
Quarter: 2018Q1

REPORT INFORMATION
  Report Type: Spontaneous
  Country: IT (occurrence: IT)
  Receive Date: 20180306
  Receipt Date: 20180306
  Transmission Date: 20180509
  Serious: Yes (Hospitalization)
  Sender: FDA-Public Use
  Company Number: IT-ASTRAZENECA-2018SE24691

PATIENT
  Age: 49 Year
  Sex: Female

DRUGS (5)
  1. QUETIAPINE. [Suspect]
     Active Substance: QUETIAPINE
     Indication: INTENTIONAL SELF-INJURY
     Dosage: 1700.0MG UNKNOWN
     Route: 048
     Dates: start: 20160816, end: 20160816
  2. GABAPENTIN. [Suspect]
     Active Substance: GABAPENTIN
     Indication: INTENTIONAL SELF-INJURY
     Dosage: 34.0DF ONCE/SINGLE ADMINISTRATION
     Route: 048
     Dates: start: 20160816, end: 20160816
  3. LEVOPRAID [Concomitant]
     Dosage: 1.0DF UNKNOWN
     Route: 048
  4. CITALOPRAM [Concomitant]
     Active Substance: CITALOPRAM HYDROBROMIDE
     Dosage: 15.0MG UNKNOWN
     Route: 048
  5. RIVOTRIL [Suspect]
     Active Substance: CLONAZEPAM
     Indication: INTENTIONAL SELF-INJURY
     Dosage: 8.5MG ONCE/SINGLE ADMINISTRATION
     Route: 048
     Dates: start: 20160816, end: 20160816

REACTIONS (4)
  - Tachycardia [Recovering/Resolving]
  - Extrapyramidal disorder [Recovering/Resolving]
  - Sopor [Recovering/Resolving]
  - Drug abuse [Recovering/Resolving]

NARRATIVE: CASE EVENT DATE: 20160816
